FAERS Safety Report 6003230-0 (Version None)
Quarter: 2008Q4

REPORT INFORMATION
  Report Type: 
  Country: None (occurrence: None)
  Receive Date: 20081216
  Receipt Date: 20081204
  Transmission Date: 20090506
  Serious: Yes (Hospitalization)
  Sender: FDA-Public Use
  Company Number: JP-JNJFOC-20081202005

PATIENT
  Sex: Female
  Weight: 50 kg

DRUGS (10)
  1. REMICADE [Suspect]
     Route: 042
  2. REMICADE [Suspect]
     Route: 042
  3. REMICADE [Suspect]
     Indication: BEHCET'S SYNDROME
     Route: 042
  4. LOXONIN [Concomitant]
     Indication: BEHCET'S SYNDROME
     Route: 048
  5. RHEUMATREX [Concomitant]
     Indication: BEHCET'S SYNDROME
     Route: 048
  6. COLCHICINE [Concomitant]
     Indication: BEHCET'S SYNDROME
     Route: 048
  7. PENTASA [Concomitant]
     Indication: BEHCET'S SYNDROME
     Route: 048
  8. PREDONINE [Concomitant]
     Route: 048
  9. PREDONINE [Concomitant]
     Route: 048
  10. GASTER D [Concomitant]
     Indication: BEHCET'S SYNDROME
     Route: 048

REACTIONS (1)
  - OVARIAN NEOPLASM [None]
